FAERS Safety Report 15819976 (Version 2)
Quarter: 2019Q1

REPORT INFORMATION
  Report Type: Spontaneous
  Country: IL (occurrence: IL)
  Receive Date: 20190114
  Receipt Date: 20190123
  Transmission Date: 20190417
  Serious: Yes (Other)
  Sender: FDA-Public Use
  Company Number: IL-B.I. PHARMACEUTICALS,INC./RIDGEFIELD-2019-BI-001046

PATIENT
  Age: 46 Year
  Sex: Female

DRUGS (2)
  1. GILOTRIF [Suspect]
     Active Substance: AFATINIB
     Indication: METASTASES TO CENTRAL NERVOUS SYSTEM
     Route: 065
  2. GILOTRIF [Suspect]
     Active Substance: AFATINIB
     Indication: LUNG NEOPLASM MALIGNANT
     Dosage: UNIT DOSE/DAILY DOSE: 60-70 MILLIGRAM, SOMETIMES 70 MG AND SOME TIMES 30MG
     Route: 065

REACTIONS (2)
  - Oedema [Recovered/Resolved]
  - Intentional product misuse [Unknown]
